FAERS Safety Report 22193095 (Version 1)
Quarter: 2023Q2

REPORT INFORMATION
  Report Type: Spontaneous
  Country: US (occurrence: None)
  Receive Date: 20230410
  Receipt Date: 20230410
  Transmission Date: 20230722
  Serious: Yes (Other)
  Sender: FDA-Public Use
  Company Number: None

PATIENT
  Sex: Female

DRUGS (24)
  1. VERZENIO [Suspect]
     Active Substance: ABEMACICLIB
     Indication: Breast cancer female
     Route: 048
     Dates: start: 20210518
  2. ALPRAZOLAM TAB [Concomitant]
  3. ALPRAZOLAM TAB [Concomitant]
  4. ANASTROZOLE TAB [Concomitant]
  5. BALSALAZIDE CAP [Concomitant]
  6. BUDESONIDE CAP [Concomitant]
  7. CITALOPRAM TAB [Concomitant]
  8. CITALOPRAM TAB [Concomitant]
  9. CO Q-10 CAP [Concomitant]
  10. DEXAMETH PHO INJ [Concomitant]
  11. FISH OIL CAP [Concomitant]
  12. GABAPENTIN [Concomitant]
     Active Substance: GABAPENTIN
  13. GABAPENTIN [Concomitant]
     Active Substance: GABAPENTIN
  14. HYDROCORT ENE [Concomitant]
  15. HYDROCORT AC SUP [Concomitant]
  16. IPRATROPIUM SPR [Concomitant]
  17. MOMETASONE CRE [Concomitant]
  18. NIFEDIPINE POW [Concomitant]
  19. OXYCODONE AND ACETAMINOPHEN [Concomitant]
     Active Substance: ACETAMINOPHEN\OXYCODONE HYDROCHLORIDE
  20. OXYCODONE TAB [Concomitant]
  21. PEG 3350 POW [Concomitant]
  22. PREDNISONE [Concomitant]
     Active Substance: PREDNISONE
  23. PROMETHAZINE [Concomitant]
     Active Substance: PROMETHAZINE HYDROCHLORIDE
  24. ZOLEDRONIC ACID [Concomitant]
     Active Substance: ZOLEDRONIC ACID

REACTIONS (2)
  - Therapy interrupted [None]
  - Surgery [None]
